FAERS Safety Report 5011467-2 (Version None)
Quarter: 2006Q2

REPORT INFORMATION
  Report Type: 
  Country: None (occurrence: None)
  Receive Date: 20060525
  Receipt Date: 20060519
  Transmission Date: 20061013
  Serious: Yes (Other)
  Sender: FDA-Public Use
  Company Number: JP-MERCK-0605USA04422

PATIENT
  Age: 58 Year
  Sex: Female

DRUGS (5)
  1. COZAAR [Suspect]
     Indication: HYPERTENSION
     Route: 048
     Dates: start: 20060405, end: 20060510
  2. NORVASC [Suspect]
     Indication: HYPERTENSION
     Route: 048
     Dates: start: 20060417, end: 20060510
  3. RANITIDINE HYDROCHLORIDE [Suspect]
     Indication: DYSPEPSIA
     Route: 048
     Dates: start: 20060501, end: 20060510
  4. SODIUM GUALENATE [Suspect]
     Indication: DYSPEPSIA
     Route: 048
     Dates: start: 20060501, end: 20060510
  5. MAGNESIUM OXIDE [Concomitant]
     Indication: DYSPEPSIA
     Route: 048
     Dates: start: 20060501, end: 20060510

REACTIONS (2)
  - FACE OEDEMA [None]
  - GINGIVAL SWELLING [None]
